FAERS Safety Report 8307502-6 (Version None)
Quarter: 2012Q2

REPORT INFORMATION
  Report Type: 
  Country: None (occurrence: None)
  Receive Date: 20120424
  Receipt Date: 20120419
  Transmission Date: 20120825
  Serious: Yes (Hospitalization)
  Sender: FDA-Public Use
  Company Number: PHHY2012DE014022

PATIENT
  Sex: Female
  Weight: 67 kg

DRUGS (7)
  1. MARCUMAR [Concomitant]
     Indication: ATRIAL FIBRILLATION
     Dosage: 1.5 MG, PER DAY
     Dates: start: 20080529
  2. ATACAND [Concomitant]
     Indication: HYPERTENSION
     Dosage: 16 MG, PER DAY
     Dates: start: 20070111
  3. TORSEMIDE [Concomitant]
     Indication: OEDEMA
     Dosage: 10 MG, PER DAY
     Dates: start: 20081122
  4. RASILEZ [Suspect]
     Indication: HYPERTENSION
     Dosage: 300 MG, PER DAY
     Route: 048
     Dates: start: 20081127
  5. ANTIADRENERGIC AGENTS, CENTRALLY ACTING [Concomitant]
  6. BISOPROLOL FUMARATE [Concomitant]
     Indication: HYPERTENSION
     Dates: start: 20081111
  7. CYNT [Concomitant]
     Indication: HYPERTENSION
     Dosage: 0.3 MG, PER DAY
     Dates: start: 20060404

REACTIONS (1)
  - CARDIAC FAILURE [None]
